FAERS Safety Report 13307187 (Version 4)
Quarter: 2018Q1

REPORT INFORMATION
  Report Type: Report from Study
  Country: FI (occurrence: FI)
  Receive Date: 20170308
  Receipt Date: 20180131
  Transmission Date: 20180508
  Serious: Yes (Hospitalization, Other)
  Sender: FDA-Public Use
  Company Number: FI-MYLANLABS-2017M1014403

PATIENT
  Age: 46 Year
  Sex: Male

DRUGS (4)
  1. LEPONEX [Suspect]
     Active Substance: CLOZAPINE
     Indication: SCHIZOAFFECTIVE DISORDER
     Dosage: 650 MG, QD
  2. LEPONEX [Suspect]
     Active Substance: CLOZAPINE
     Dosage: 500 MG, QD
  3. LITHIUM. [Concomitant]
     Active Substance: LITHIUM
     Indication: PRODUCT USED FOR UNKNOWN INDICATION
     Dosage: UNK
  4. DEPRAKINE [Concomitant]
     Active Substance: VALPROIC ACID
     Indication: PRODUCT USED FOR UNKNOWN INDICATION
     Dosage: UNK

REACTIONS (12)
  - Drug dose omission [Unknown]
  - Cerebral disorder [Unknown]
  - Neuroleptic malignant syndrome [Unknown]
  - Psychotic disorder [Unknown]
  - Pneumonia [Unknown]
  - White blood cell count decreased [Unknown]
  - Neutropenia [Not Recovered/Not Resolved]
  - Haemoglobin decreased [Not Recovered/Not Resolved]
  - Mental impairment [Unknown]
  - Device related infection [Unknown]
  - Platelet count decreased [Not Recovered/Not Resolved]
  - Neurological symptom [Unknown]

NARRATIVE: CASE EVENT DATE: 201612
